FAERS Safety Report 20978702 (Version 1)
Quarter: 2022Q2

REPORT INFORMATION
  Report Type: Spontaneous
  Country: GB (occurrence: GB)
  Receive Date: 20220618
  Receipt Date: 20220618
  Transmission Date: 20220721
  Serious: Yes (Life-Threatening)
  Sender: FDA-Public Use
  Company Number: None

PATIENT
  Age: 72 Year
  Sex: Male
  Weight: 85 kg

DRUGS (18)
  1. RAMIPRIL [Suspect]
     Active Substance: RAMIPRIL
     Indication: Ill-defined disorder
     Route: 065
     Dates: start: 20220607
  2. RAMIPRIL [Concomitant]
     Active Substance: RAMIPRIL
     Indication: Ill-defined disorder
     Dosage: 1 DOSAGE FORMS DAILY; TAKE ONE CAPSULE EACH DAY, DURATION: 82 DAYS
     Route: 065
     Dates: start: 20220303, end: 20220524
  3. CALCIUM CARBONATE\CHOLECALCIFEROL [Concomitant]
     Active Substance: CALCIUM CARBONATE\CHOLECALCIFEROL
     Indication: Ill-defined disorder
     Dosage: 2 DOSAGE FORMS DAILY; ONE TO BE TAKEN TWICE A DAY (THIS ALTERNATIVE T
     Route: 065
     Dates: start: 20220303
  4. ALLOPURINOL [Concomitant]
     Active Substance: ALLOPURINOL
     Indication: Ill-defined disorder
     Dosage: 1 DOSAGE FORMS DAILY; ONE TO BE TAKEN DAILY AS DIRECTED BY SPECIALIST
     Route: 065
     Dates: start: 20220303
  5. BISOPROLOL [Concomitant]
     Active Substance: BISOPROLOL
     Indication: Ill-defined disorder
     Dosage: 1 DOSAGE FORMS DAILY; TAKE ONE DAILY
     Route: 065
     Dates: start: 20220303
  6. CARBOCYSTEINE [Concomitant]
     Active Substance: CARBOCYSTEINE
     Indication: Ill-defined disorder
     Dosage: 4 DOSAGE FORMS DAILY; TWO TO BE TAKEN TWICE A DAY
     Route: 065
     Dates: start: 20220303
  7. COLCHICINE [Concomitant]
     Active Substance: COLCHICINE
     Indication: Ill-defined disorder
     Dosage: 1 DOSAGE FORMS DAILY; TAKE ONE EACH DAY
     Route: 065
     Dates: start: 20220303
  8. COLCHICINE [Concomitant]
     Active Substance: COLCHICINE
     Indication: Prophylaxis
  9. DOXYCYCLINE [Concomitant]
     Active Substance: DOXYCYCLINE
     Indication: Ill-defined disorder
     Dosage: TWO NOW THEN ONE DAILY
     Route: 065
     Dates: start: 20220303
  10. DOXYCYCLINE [Concomitant]
     Active Substance: DOXYCYCLINE
     Indication: Chronic obstructive pulmonary disease
  11. FOLIC ACID [Concomitant]
     Active Substance: FOLIC ACID
     Indication: Ill-defined disorder
     Dosage: 1 DOSAGE FORMS DAILY; TAKE ONE DAILY TO COMPLETE 3 MONTHS, FOLLOWED B...
     Route: 065
     Dates: start: 20220303
  12. BECLOMETHASONE\FORMOTEROL [Concomitant]
     Active Substance: BECLOMETHASONE\FORMOTEROL
     Indication: Ill-defined disorder
     Dosage: 4 DOSAGE FORMS DAILY; TWO PUFFS TO BE INHALED TWICE A DAY
     Route: 055
     Dates: start: 20220303
  13. LANSOPRAZOLE [Concomitant]
     Active Substance: LANSOPRAZOLE
     Indication: Ill-defined disorder
     Dosage: 2 DOSAGE FORMS DAILY; TAKE ONE CAPSULE TWICE A DAY TO HELP PREVENT IN...
     Route: 065
     Dates: start: 20220303
  14. MONTELUKAST [Concomitant]
     Active Substance: MONTELUKAST SODIUM
     Indication: Ill-defined disorder
     Dosage: 1 DOSAGE FORMS DAILY; ONE TO BE TAKEN AT NIGHT
     Route: 065
     Dates: start: 20220303
  15. PREDNISOLONE [Concomitant]
     Active Substance: PREDNISOLONE
     Indication: Ill-defined disorder
     Dosage: 6 DOSAGE FORMS DAILY; SIX EVERY MORNING STANDBY COURSE FOR EXACERBATI...
     Route: 065
     Dates: start: 20220303
  16. SPIRIVA [Concomitant]
     Active Substance: TIOTROPIUM BROMIDE MONOHYDRATE
     Indication: Ill-defined disorder
     Dosage: 2 DOSAGE FORMS DAILY; INHALE TWO PUFFS ONCE DAILY AS DIRECTED BY SPEC...
     Route: 055
     Dates: start: 20220311
  17. THEOPHYLLINE ANHYDROUS [Concomitant]
     Active Substance: THEOPHYLLINE ANHYDROUS
     Indication: Ill-defined disorder
     Dosage: 2 DOSAGE FORMS DAILY; TAKE ONE EVERY 12 HRS
     Route: 065
     Dates: start: 20220303
  18. VENTOLIN [Concomitant]
     Active Substance: ALBUTEROL SULFATE
     Indication: Ill-defined disorder
     Dosage: INHALE 2 DOSES AS NEEDED
     Route: 055
     Dates: start: 20220303

REACTIONS (1)
  - Angioedema [Recovered/Resolved]

NARRATIVE: CASE EVENT DATE: 20220607
